FAERS Safety Report 23872851 (Version 3)
Quarter: 2025Q2

REPORT INFORMATION
  Report Type: Report from Study
  Country: US (occurrence: US)
  Receive Date: 20240520
  Receipt Date: 20250613
  Transmission Date: 20250717
  Serious: Yes (Hospitalization, Other)
  Sender: ABBVIE
  Company Number: US-ABBVIE-5762152

PATIENT
  Age: 67 Year
  Sex: Female

DRUGS (2)
  1. HUMIRA [Suspect]
     Active Substance: ADALIMUMAB
     Indication: Rheumatoid arthritis
     Route: 058
  2. HUMIRA [Suspect]
     Active Substance: ADALIMUMAB
     Route: 058

REACTIONS (10)
  - Blood iron decreased [Unknown]
  - Haematochezia [Unknown]
  - Blood pressure abnormal [Unknown]
  - Ulcer [Unknown]
  - Anaemia [Unknown]
  - Hiatus hernia [Unknown]
  - Arthralgia [Unknown]
  - Localised infection [Unknown]
  - Diverticulitis [Unknown]
  - Gastrointestinal disorder [Unknown]

NARRATIVE: CASE EVENT DATE: 20240101
